FAERS Safety Report 12941033 (Version 2)
Quarter: 2016Q4

REPORT INFORMATION
  Report Type: Report from Study
  Country: IT (occurrence: IT)
  Receive Date: 20161115
  Receipt Date: 20161207
  Transmission Date: 20170207
  Serious: Yes (Other)
  Sender: FDA-Public Use
  Company Number: PHHY2016IT155550

PATIENT
  Sex: Female

DRUGS (1)
  1. OCTREOTIDE, LONG ACTING [Suspect]
     Active Substance: OCTREOTIDE ACETATE
     Indication: PRODUCT USED FOR UNKNOWN INDICATION
     Dosage: 30 MG/ 2.5 ML
     Route: 065

REACTIONS (1)
  - Ileus [Unknown]
